FAERS Safety Report 6710688-8 (Version None)
Quarter: 2010Q2

REPORT INFORMATION
  Report Type: 
  Country: None (occurrence: None)
  Receive Date: 20100504
  Receipt Date: 20100504
  Transmission Date: 20101027
  Serious: Yes (Life-Threatening, Disabling, Other)
  Sender: FDA-Public Use
  Company Number: None

PATIENT
  Age: 3 Year
  Sex: Male
  Weight: 2.3224 kg

DRUGS (3)
  1. CHILDREN'S BENADRYL ALLERGY [Suspect]
     Indication: LACRIMATION INCREASED
     Dosage: 1 OZ. -ONLY 4 TOTAL TIMES- 4-6 HOURS- PO
     Route: 048
     Dates: start: 20100428, end: 20100429
  2. CHILDREN'S BENADRYL ALLERGY [Suspect]
     Indication: RHINORRHOEA
     Dosage: 1 OZ. -ONLY 4 TOTAL TIMES- 4-6 HOURS- PO
     Route: 048
     Dates: start: 20100428, end: 20100429
  3. CHILDREN'S BENADRYL ALLERGY [Suspect]
     Indication: SNEEZING
     Dosage: 1 OZ. -ONLY 4 TOTAL TIMES- 4-6 HOURS- PO
     Route: 048
     Dates: start: 20100428, end: 20100429

REACTIONS (6)
  - DYSPNOEA [None]
  - HYPOVENTILATION [None]
  - NO THERAPEUTIC RESPONSE [None]
  - OXYGEN SATURATION DECREASED [None]
  - RESPIRATORY DISTRESS [None]
  - RESPIRATORY RATE INCREASED [None]
